FAERS Safety Report 9563575 (Version 1)
Quarter: 2013Q4

REPORT INFORMATION
  Report Type: Spontaneous
  Country: US (occurrence: None)
  Receive Date: 20130926
  Receipt Date: 20130926
  Transmission Date: 20140711
  Serious: Yes (Hospitalization)
  Sender: FDA-Public Use
  Company Number: None

PATIENT
  Age: 76 Year
  Sex: Female
  Weight: 50.03 kg

DRUGS (13)
  1. CETUXIMAB [Suspect]
     Indication: SMALL CELL CARCINOMA
     Dosage: 372MG  IV
     Route: 042
     Dates: start: 20130910
  2. ERLOTINIB [Suspect]
     Indication: SMALL CELL CARCINOMA
     Dosage: 100MG  PO
     Route: 048
     Dates: start: 20130916
  3. OXCODONE [Concomitant]
  4. ZOFRAN [Concomitant]
  5. DOCUSATE [Concomitant]
  6. METOPROLOL [Concomitant]
  7. ERGOCALCEFEROL [Concomitant]
  8. ZOLOFT [Concomitant]
  9. ASPIRIN [Concomitant]
  10. ACETAMINOPHEN [Concomitant]
  11. AQUAPHOR [Concomitant]
  12. WESTCORT CREAM 0.2% [Concomitant]
  13. TRAZADONE [Concomitant]

REACTIONS (1)
  - Gastric fistula [None]
